FAERS Safety Report 4752242-3 (Version None)
Quarter: 2005Q3

REPORT INFORMATION
  Report Type: 
  Country: None (occurrence: None)
  Receive Date: 20050825
  Receipt Date: 20050713
  Transmission Date: 20060218
  Serious: No
  Sender: FDA-Public Use
  Company Number: US-GLAXOSMITHKLINE-A0566112A

PATIENT
  Age: 64 Year
  Sex: Female

DRUGS (7)
  1. LOTRONEX [Suspect]
     Indication: IRRITABLE BOWEL SYNDROME
     Dosage: 1MG TWICE PER DAY
     Route: 048
     Dates: start: 20000801
  2. IMDUR [Concomitant]
  3. ATENOLOL [Concomitant]
  4. LISINOPRIL [Concomitant]
  5. WARFARIN [Concomitant]
  6. PLAVIX [Concomitant]
  7. AVANDIA [Concomitant]

REACTIONS (1)
  - DRUG INEFFECTIVE [None]
